FAERS Safety Report 9629935 (Version 2)
Quarter: 2013Q4

REPORT INFORMATION
  Report Type: Report from Study
  Country: AT (occurrence: AT)
  Receive Date: 20131017
  Receipt Date: 20131017
  Transmission Date: 20140711
  Serious: Yes (Hospitalization)
  Sender: FDA-Public Use
  Company Number: AT-PFIZER INC-2013277784

PATIENT
  Age: 76 Year
  Sex: Male
  Weight: 93 kg

DRUGS (11)
  1. IRINOTECAN HCL [Suspect]
     Indication: COLORECTAL CANCER METASTATIC
     Dosage: 380 MG, EVERY 2 WEEKS
     Route: 042
     Dates: start: 20110722
  2. CETUXIMAB [Suspect]
     Indication: COLORECTAL CANCER METASTATIC
     Dosage: 1800 MG, EVERY 2 WEEKS
     Route: 042
     Dates: start: 20110722
  3. FLUOROURACIL [Suspect]
     Indication: COLORECTAL CANCER METASTATIC
     Dosage: UNK
     Route: 042
     Dates: start: 20110722
  4. FLUOROURACIL [Suspect]
     Dosage: 856 MG, EVERY 2 WEEKS
     Route: 042
  5. FOLINIC ACID [Suspect]
     Indication: COLORECTAL CANCER METASTATIC
     Dosage: 513.6 MG, EVERY 2 WEEKS
     Route: 042
  6. CO-DILATREND [Concomitant]
     Dosage: 12.5 MG, 1X/DAY
     Route: 048
  7. TORASEMIDE [Concomitant]
     Dosage: 5 MG, 1X/DAY
     Route: 048
  8. LISINOPRIL [Concomitant]
     Dosage: 10 MG, 1X/DAY
     Route: 048
  9. FRAGMIN [Concomitant]
     Dosage: 16000 IU, 1X/DAY
     Route: 058
  10. THYREX [Concomitant]
     Dosage: 50 UG, UNK
     Route: 048
  11. AGLANDIN [Concomitant]
     Dosage: 0.4 MG, 1X/DAY
     Route: 048

REACTIONS (1)
  - Staphylococcal infection [Recovered/Resolved]
